FAERS Safety Report 4908646-9 (Version None)
Quarter: 2006Q1

REPORT INFORMATION
  Report Type: 
  Country: None (occurrence: None)
  Receive Date: 20060210
  Receipt Date: 20050927
  Transmission Date: 20060701
  Serious: No
  Sender: FDA-Public Use
  Company Number: US-GLAXOSMITHKLINE-A0576053A

PATIENT
  Age: 60 Year
  Sex: Female

DRUGS (5)
  1. PAXIL CR [Suspect]
     Indication: MULTIPLE SCLEROSIS
     Route: 048
     Dates: start: 20040101
  2. PAROXETINE HYDROCHLORIDE [Suspect]
     Indication: MULTIPLE SCLEROSIS
     Route: 048
  3. CALCIUM GLUCONATE [Concomitant]
  4. VITAMIN CAP [Concomitant]
  5. ACIPHEX [Concomitant]

REACTIONS (2)
  - CRYING [None]
  - FEELING ABNORMAL [None]
